FAERS Safety Report 5570047-0 (Version None)
Quarter: 2007Q4

REPORT INFORMATION
  Report Type: 
  Country: None (occurrence: None)
  Receive Date: 20071217
  Receipt Date: 20071204
  Transmission Date: 20080405
  Serious: Yes (Hospitalization)
  Sender: FDA-Public Use
  Company Number: DSJ-2007-09736

PATIENT
  Age: 63 Year
  Sex: Male
  Weight: 87 kg

DRUGS (6)
  1. OLMESARTAN MEDOXOMIL [Suspect]
     Indication: ESSENTIAL HYPERTENSION
     Dosage: 20 MG (20 MG, 1 IN 1 D), PER ORAL
     Route: 048
     Dates: start: 20060828
  2. GLUFAST (METIGLINIDE) (METIGLINIDE) [Suspect]
     Dosage: 30 MG (3 IN 1 D), PER ORAL
     Route: 048
     Dates: start: 20060213
  3. METFORMIN HYDROCHLORIDE [Suspect]
     Dosage: 500 MG (2 IN 1 D), PER ORAL
     Route: 048
     Dates: start: 20060213
  4. NORVASC [Suspect]
     Dosage: 20 MG (2 IN 1 D), PER ORAL
     Route: 048
     Dates: start: 20070223
  5. ALLOPURINOL [Suspect]
     Dosage: 100 MG (100 MG, 1 IN 1 D), PER ORAL
     Route: 048
     Dates: start: 20070223
  6. CALBLOCK (AZELNIDIPINE) (AZELNIDIPINE) [Concomitant]

REACTIONS (3)
  - CAROTID ARTERIOSCLEROSIS [None]
  - DUODENAL ULCER HAEMORRHAGE [None]
  - HYPERURICAEMIA [None]
